FAERS Safety Report 8718990 (Version 2)
Quarter: 2013Q4

REPORT INFORMATION
  Report Type: Spontaneous
  Country: US (occurrence: US)
  Receive Date: 20120812
  Receipt Date: 20131101
  Transmission Date: 20140711
  Serious: No
  Sender: FDA-Public Use
  Company Number: US-009507513-1107USA01973

PATIENT
  Age: 56 Year
  Sex: Male

DRUGS (4)
  1. TRUSOPT [Suspect]
     Indication: GLAUCOMA
     Dosage: UNK
     Route: 047
     Dates: start: 199511
  2. PILOCAR OPHTHALMIC SOLUTION [Suspect]
     Dosage: UNK
     Dates: start: 1977, end: 1995
  3. TIMOPTIC [Concomitant]
  4. TRUSOPT [Suspect]
     Route: 048

REACTIONS (3)
  - Cataract [Recovered/Resolved]
  - Intraocular pressure increased [Recovered/Resolved]
  - Vision blurred [Recovered/Resolved]
